FAERS Safety Report 11350468 (Version 1)
Quarter: 2015Q3

REPORT INFORMATION
  Report Type: Spontaneous
  Country: JP (occurrence: JP)
  Receive Date: 20150807
  Receipt Date: 20150807
  Transmission Date: 20151125
  Serious: Yes (Other)
  Sender: FDA-Public Use
  Company Number: JP-PFIZER INC-2015263867

PATIENT
  Age: 74 Year
  Sex: Female

DRUGS (1)
  1. MEDROXYPROGESTERONE ACETATE. [Suspect]
     Active Substance: MEDROXYPROGESTERONE ACETATE
     Indication: BREAST CANCER METASTATIC
     Route: 048

REACTIONS (3)
  - Breast cancer metastatic [Unknown]
  - Disease progression [Unknown]
  - Interstitial lung disease [Recovered/Resolved]
